FAERS Safety Report 7059047-1 (Version None)
Quarter: 2010Q4

REPORT INFORMATION
  Report Type: 
  Country: None (occurrence: None)
  Receive Date: 20101025
  Receipt Date: 20101007
  Transmission Date: 20110411
  Serious: No
  Sender: FDA-Public Use
  Company Number: US-BIOGENIDEC-2010BI004172

PATIENT
  Age: 61 Year
  Sex: Female

DRUGS (1)
  1. TYSABRI [Suspect]
     Indication: MULTIPLE SCLEROSIS
     Route: 042
     Dates: start: 20090909

REACTIONS (5)
  - DRUG SPECIFIC ANTIBODY PRESENT [None]
  - DYSKINESIA [None]
  - LIVER DISORDER [None]
  - MUSCLE SPASMS [None]
  - TRISMUS [None]
